FAERS Safety Report 20479604 (Version 3)
Quarter: 2022Q2

REPORT INFORMATION
  Report Type: Spontaneous
  Country: US (occurrence: US)
  Receive Date: 20220216
  Receipt Date: 20220404
  Transmission Date: 20220721
  Serious: No
  Sender: FDA-Public Use
  Company Number: US-GSKCCFUS-Case-01294770_AE-75445

PATIENT
  Age: 86 Year
  Sex: Female

DRUGS (4)
  1. INCRUSE ELLIPTA [Suspect]
     Active Substance: UMECLIDINIUM BROMIDE
     Indication: Product used for unknown indication
     Dosage: 1 PUFF(S), QD
     Route: 055
     Dates: end: 20220209
  2. INCRUSE ELLIPTA [Suspect]
     Active Substance: UMECLIDINIUM BROMIDE
     Dosage: UNK, QD
  3. ADVAIR DISKUS [Suspect]
     Active Substance: FLUTICASONE PROPIONATE\SALMETEROL XINAFOATE
     Indication: Product used for unknown indication
     Dosage: UNK
  4. XARELTO [Suspect]
     Active Substance: RIVAROXABAN
     Indication: Atrial fibrillation
     Dosage: UNK
     Route: 048

REACTIONS (12)
  - Blood urine present [Recovered/Resolved]
  - Bloody discharge [Recovered/Resolved]
  - Rhinorrhoea [Unknown]
  - Secretion discharge [Recovered/Resolved]
  - Productive cough [Recovered/Resolved]
  - Decreased appetite [Unknown]
  - Dizziness [Unknown]
  - Fall [Unknown]
  - Drug hypersensitivity [Unknown]
  - Wrong product administered [Unknown]
  - Intentional dose omission [Unknown]
  - Pain [Unknown]

NARRATIVE: CASE EVENT DATE: 20220123
